FAERS Safety Report 14101989 (Version 3)
Quarter: 2017Q4

REPORT INFORMATION
  Report Type: Spontaneous
  Country: IT (occurrence: IT)
  Receive Date: 20171018
  Receipt Date: 20171026
  Transmission Date: 20180321
  Serious: Yes (Other)
  Sender: FDA-Public Use
  Company Number: PHHY2017IT151953

PATIENT
  Age: 23 Year
  Sex: Male

DRUGS (3)
  1. AMOXICILLIN. [Suspect]
     Active Substance: AMOXICILLIN
     Indication: INFECTION
     Dosage: 9 G, UNK
     Route: 065
  2. LAMOTRIGINE. [Suspect]
     Active Substance: LAMOTRIGINE
     Indication: EPILEPSY
     Dosage: 500 MG, UNK
     Route: 065
     Dates: start: 20170918, end: 20170918
  3. SYNFLEX (NAPROXEN SODIUM) [Suspect]
     Active Substance: NAPROXEN SODIUM
     Indication: PRODUCT USED FOR UNKNOWN INDICATION
     Dosage: 9 DF, UNK
     Route: 048
     Dates: start: 20170918, end: 20170918

REACTIONS (4)
  - Overdose [Unknown]
  - Hyperreflexia [Unknown]
  - Intentional self-injury [Unknown]
  - Alcohol interaction [Unknown]

NARRATIVE: CASE EVENT DATE: 20170918
